FAERS Safety Report 9536820 (Version 1)
Quarter: 2013Q3

REPORT INFORMATION
  Report Type: Spontaneous
  Country: US (occurrence: None)
  Receive Date: 20130918
  Receipt Date: 20130918
  Transmission Date: 20140515
  Serious: Yes (Hospitalization)
  Sender: FDA-Public Use
  Company Number: None

PATIENT
  Age: 61 Year
  Sex: Male
  Weight: 93.4 kg

DRUGS (1)
  1. CISPLATIN [Suspect]
     Dosage: DAY 22 DOSE HELD DUE THE NAUSEA + VOMITING.

REACTIONS (1)
  - Pulmonary embolism [None]
